FAERS Safety Report 21646927 (Version 2)
Quarter: 2022Q4

REPORT INFORMATION
  Report Type: Spontaneous
  Country: US (occurrence: US)
  Receive Date: 20221127
  Receipt Date: 20221209
  Transmission Date: 20230112
  Serious: Yes (Death, Life-Threatening, Hospitalization)
  Sender: FDA-Public Use
  Company Number: US-TEVA-2022-US-2827913

PATIENT
  Age: 33 Year
  Sex: Female

DRUGS (5)
  1. METFORMIN [Suspect]
     Active Substance: METFORMIN HYDROCHLORIDE
     Indication: Type 2 diabetes mellitus
     Dosage: APPROXIMATELY 100G , ADDITIONAL INFO: OVERDOSE
     Route: 048
  2. SITAGLIPTIN [Suspect]
     Active Substance: SITAGLIPTIN
     Indication: Type 2 diabetes mellitus
     Dosage: ADDITIONAL INFO: OVERDOSE
     Route: 048
  3. EMPAGLIFLOZIN [Suspect]
     Active Substance: EMPAGLIFLOZIN
     Indication: Type 2 diabetes mellitus
     Dosage: ADDITIONAL INFO: OVERDOSE
     Route: 048
  4. SERTRALINE [Suspect]
     Active Substance: SERTRALINE HYDROCHLORIDE
     Indication: Product used for unknown indication
     Dosage: ADDITIONAL INFO: OVERDOSE; UNKNOWN AMOUNT OF DRUG TAKEN
     Route: 048
  5. GLIMEPIRIDE [Concomitant]
     Active Substance: GLIMEPIRIDE
     Indication: Type 2 diabetes mellitus
     Route: 065

REACTIONS (8)
  - Metabolic acidosis [Fatal]
  - Eosinophilic myocarditis [Fatal]
  - Intentional overdose [Fatal]
  - Respiratory arrest [Unknown]
  - Ventricular fibrillation [Unknown]
  - Cardiac arrest [Unknown]
  - Pulmonary embolism [Not Recovered/Not Resolved]
  - Cerebral infarction [Not Recovered/Not Resolved]
